FAERS Safety Report 8417967-7 (Version None)
Quarter: 2012Q2

REPORT INFORMATION
  Report Type: 
  Country: None (occurrence: None)
  Receive Date: 20120607
  Receipt Date: 20120605
  Transmission Date: 20120825
  Serious: Yes (Other)
  Sender: FDA-Public Use
  Company Number: DE-BAYER-2012-004847

PATIENT
  Age: 25 Year
  Sex: Female
  Weight: 58 kg

DRUGS (1)
  1. MIRENA [Suspect]
     Dosage: 20 MCG/24HR, CONT
     Route: 015
     Dates: start: 20100801, end: 20110101

REACTIONS (6)
  - VAGINAL HAEMORRHAGE [None]
  - CHLAMYDIAL INFECTION [None]
  - PAIN [None]
  - DEVICE DISLOCATION [None]
  - DEVICE DIFFICULT TO USE [None]
  - APPENDICITIS [None]
